FAERS Safety Report 7088442-X (Version None)
Quarter: 2010Q4

REPORT INFORMATION
  Report Type: 
  Country: None (occurrence: None)
  Receive Date: 20101028
  Receipt Date: 20101021
  Transmission Date: 20110411
  Serious: Yes (Death, Hospitalization)
  Sender: FDA-Public Use
  Company Number: 2010AC000307

PATIENT
  Age: 84 Year
  Sex: Male

DRUGS (15)
  1. DIGOXIN [Suspect]
     Dosage: 0.250 MG; QD; PO
     Route: 048
     Dates: start: 20030801, end: 20070601
  2. LASIX [Concomitant]
  3. ARICEPT [Concomitant]
  4. COUMADIN [Concomitant]
  5. NAMENDA [Concomitant]
  6. TIKOSYN [Concomitant]
  7. ASPIRIN [Concomitant]
  8. ATENOLOL [Concomitant]
  9. LISINOPRIL [Concomitant]
  10. ZOCOR [Concomitant]
  11. IMDUR [Concomitant]
  12. CARDIZEM [Concomitant]
  13. HYDROCHLOROTHIAZIDE [Concomitant]
  14. VITAMIN D [Concomitant]
  15. POTASSIUM CHLORIDE [Concomitant]

REACTIONS (34)
  - ACUTE MYOCARDIAL INFARCTION [None]
  - AMNESIA [None]
  - ANGINA PECTORIS [None]
  - AORTIC ARTERIOSCLEROSIS [None]
  - AORTIC STENOSIS [None]
  - AZOTAEMIA [None]
  - BLOOD CREATINE INCREASED [None]
  - BLOOD GLUCOSE INCREASED [None]
  - BLOOD UREA INCREASED [None]
  - BRADYCARDIA [None]
  - BRAIN NATRIURETIC PEPTIDE INCREASED [None]
  - BUNDLE BRANCH BLOCK LEFT [None]
  - BUNDLE BRANCH BLOCK RIGHT [None]
  - CARDIAC ARREST [None]
  - CARDIOMEGALY [None]
  - CONSTIPATION [None]
  - DYSPNOEA EXERTIONAL [None]
  - DYSURIA [None]
  - ECONOMIC PROBLEM [None]
  - ELECTROCARDIOGRAM QT PROLONGED [None]
  - FATIGUE [None]
  - ISCHAEMIC CARDIOMYOPATHY [None]
  - LACERATION [None]
  - LIMB DISCOMFORT [None]
  - MITRAL VALVE CALCIFICATION [None]
  - MITRAL VALVE INCOMPETENCE [None]
  - OEDEMA PERIPHERAL [None]
  - ORTHOPNOEA [None]
  - PCO2 INCREASED [None]
  - PROSTATOMEGALY [None]
  - PULMONARY CONGESTION [None]
  - UNRESPONSIVE TO STIMULI [None]
  - VENTRICULAR DYSFUNCTION [None]
  - VENTRICULAR EXTRASYSTOLES [None]
